FAERS Safety Report 5064673-5 (Version None)
Quarter: 2006Q3

REPORT INFORMATION
  Report Type: 
  Country: None (occurrence: None)
  Receive Date: 20060728
  Receipt Date: 20060707
  Transmission Date: 20061208
  Serious: Yes (Hospitalization, Other)
  Sender: FDA-Public Use
  Company Number: US-GLAXOSMITHKLINE-A0611448A

PATIENT
  Age: 21 Year
  Sex: Female
  Weight: 51.8 kg

DRUGS (3)
  1. IMITREX [Suspect]
     Indication: MIGRAINE
     Dosage: 100MG UNKNOWN
     Route: 048
  2. BIRTH CONTROL PILLS [Suspect]
     Indication: CONTRACEPTION
     Route: 048
  3. BETA BLOCKER [Concomitant]
     Indication: MIGRAINE PROPHYLAXIS

REACTIONS (12)
  - ARTERIOSPASM CORONARY [None]
  - BLOOD CREATINE PHOSPHOKINASE MB INCREASED [None]
  - CARDIAC ENZYMES INCREASED [None]
  - CHEST PAIN [None]
  - DRUG INEFFECTIVE [None]
  - ELECTROCARDIOGRAM ST SEGMENT ABNORMAL [None]
  - ELECTROCARDIOGRAM ST SEGMENT ELEVATION [None]
  - MIGRAINE [None]
  - MYOCARDIAL INFARCTION [None]
  - PALLOR [None]
  - SINUS BRADYCARDIA [None]
  - TROPONIN INCREASED [None]
